FAERS Safety Report 4166219 (Version 4)
Quarter: 2020Q3

REPORT INFORMATION
  Report Type: Report from Study
  Country: US (occurrence: US)
  Receive Date: 20040628
  Receipt Date: 20060526
  Transmission Date: 20201105
  Serious: Yes (Other)
  Sender: FDA-Public Use
  Company Number: US-JNJFOC-20040603094

PATIENT
  Age: 56 Year
  Sex: Male
  Weight: 75.39 kg

DRUGS (15)
  1. TRAMADOL HYDROCHLORIDE. [Concomitant]
     Active Substance: TRAMADOL HYDROCHLORIDE
     Indication: PAIN
     Route: 048
  2. MULTIVITAMINS [Concomitant]
     Active Substance: VITAMINS
  3. MULTIVITAMINS [Concomitant]
     Active Substance: VITAMINS
  4. ACETAMINOPHEN. [Concomitant]
     Active Substance: ACETAMINOPHEN
     Indication: PAIN
     Dosage: 2 QD/PRN
     Route: 048
     Dates: start: 20040106
  5. MULTIVITAMINS [Concomitant]
     Active Substance: VITAMINS
  6. MULTIVITAMINS [Concomitant]
     Active Substance: VITAMINS
  7. MULTIVITAMINS [Concomitant]
     Active Substance: VITAMINS
     Dosage: QD
  8. CISAPRIDE [Suspect]
     Active Substance: CISAPRIDE
     Indication: GASTROINTESTINAL MOTILITY DISORDER
     Route: 048
     Dates: start: 20010921, end: 20040608
  9. MULTIVITAMINS [Concomitant]
     Active Substance: VITAMINS
  10. CISAPRIDE [Suspect]
     Active Substance: CISAPRIDE
     Indication: GASTROOESOPHAGEAL REFLUX DISEASE
     Route: 048
     Dates: start: 20010921, end: 20040608
  11. NAPROXEN SODIUM. [Concomitant]
     Active Substance: NAPROXEN SODIUM
     Indication: PAIN
     Dosage: 1?2 PRN
     Route: 048
     Dates: start: 20040106
  12. MULTIVITAMINS [Concomitant]
     Active Substance: VITAMINS
  13. ROSUVASTATIN. [Concomitant]
     Active Substance: ROSUVASTATIN
     Dosage: QD
     Route: 048
     Dates: start: 20040312
  14. MULTIVITAMINS [Concomitant]
     Active Substance: VITAMINS
  15. LANSOPRAZOLE. [Concomitant]
     Active Substance: LANSOPRAZOLE
     Route: 048
     Dates: start: 20040106

REACTIONS (1)
  - Electrocardiogram QT prolonged [Recovered/Resolved]

NARRATIVE: CASE EVENT DATE: 20040525
